FAERS Safety Report 5048489-1 (Version None)
Quarter: 2006Q3

REPORT INFORMATION
  Report Type: 
  Country: None (occurrence: None)
  Receive Date: 20060705
  Receipt Date: 20060619
  Transmission Date: 20061208
  Serious: Yes (Hospitalization)
  Sender: FDA-Public Use
  Company Number: GBR-2006-0002358

PATIENT
  Age: 45 Year
  Sex: Male

DRUGS (13)
  1. OXYCONTIN [Suspect]
     Indication: PAIN
     Dosage: ORAL
     Route: 048
     Dates: start: 20060524, end: 20060526
  2. OXYCODONE HCL [Suspect]
     Indication: PAIN
     Dosage: ORAL
     Route: 048
     Dates: start: 20060524, end: 20060526
  3. MORPHINE [Suspect]
     Indication: PAIN
     Dosage: 100 MG, DAILY, INTRAVENOUS
     Route: 042
     Dates: start: 20060526, end: 20060527
  4. KYTRIL [Concomitant]
  5. SOLU-MEDROL (METHYLPRESNISOLONE SODIUM SUCCINATE) [Concomitant]
  6. TRANXENE [Concomitant]
  7. CHLORPROMAZINE HCL [Concomitant]
  8. MAGNESIUM SULFATE [Concomitant]
  9. SOLUPRED (PREDNISOLONE SODIUM SULFOBENZOATE) [Concomitant]
  10. NEURONTIN [Concomitant]
  11. FERO-GRAD (FERROUS SULFATE) [Concomitant]
  12. CLONAZEPAM [Concomitant]
  13. KETAMINE (KETAMINE) [Concomitant]

REACTIONS (9)
  - ANAEMIA [None]
  - DECREASED APPETITE [None]
  - DEHYDRATION [None]
  - HYPERKALAEMIA [None]
  - NEPHROPATHY TOXIC [None]
  - RENAL FAILURE [None]
  - SOMNOLENCE [None]
  - URINARY RETENTION [None]
  - VOMITING [None]
